FAERS Safety Report 9099060 (Version 11)
Quarter: 2014Q2

REPORT INFORMATION
  Report Type: Spontaneous
  Country: US (occurrence: US)
  Receive Date: 20130213
  Receipt Date: 20140414
  Transmission Date: 20141212
  Serious: Yes (Hospitalization, Other)
  Sender: FDA-Public Use
  Company Number: US-B.I. PHARMACEUTICALS,INC./RIDGEFIELD-2013-BI-03525BP

PATIENT
  Age: 91 Year
  Sex: Female
  Weight: 108.86 kg

DRUGS (24)
  1. PRADAXA [Suspect]
     Indication: ANTICOAGULANT THERAPY
     Dosage: 300 MG
     Route: 048
     Dates: start: 20120312, end: 20120705
  2. PRADAXA [Suspect]
     Indication: ATRIAL FIBRILLATION
  3. NEXIUM [Concomitant]
     Route: 065
     Dates: start: 2012
  4. TOPROL XL [Concomitant]
     Route: 065
     Dates: start: 2008
  5. LASIX [Concomitant]
     Dosage: 40 MG
     Route: 048
     Dates: start: 2008
  6. ALDACTONE [Concomitant]
     Indication: HYPERTENSION
     Dosage: 25 MG
     Route: 048
     Dates: start: 2008
  7. MICARDIS [Concomitant]
     Indication: HYPERTENSION
     Dosage: 20 MG
     Route: 048
     Dates: start: 2008
  8. ALBUTEROL IPRATROPIUM [Concomitant]
     Indication: WHEEZING
     Route: 055
     Dates: start: 2008
  9. ALBUTEROL IPRATROPIUM [Concomitant]
     Indication: DYSPNOEA
  10. CALCIUM-VITAMIN D2 [Concomitant]
     Route: 048
  11. LOPRESSOR [Concomitant]
     Indication: ATRIAL FIBRILLATION
     Dosage: 25 MG
     Route: 048
  12. TRENTAL [Concomitant]
     Dosage: 400 MG
     Route: 048
  13. VOLTAREN [Concomitant]
     Route: 061
  14. FERROUS GLUCONATE [Concomitant]
     Dosage: 324 MG
     Route: 048
  15. SYNTHROID [Concomitant]
     Dosage: 50 MCG
     Route: 048
  16. MULTIVITAMIN [Concomitant]
     Route: 048
  17. ASCORBATE CALCIUM [Concomitant]
     Route: 065
  18. IPRATROPIUM [Concomitant]
     Route: 065
  19. VITAMIN D [Concomitant]
     Route: 065
  20. PRENATAL MULTIVIT-IRON [Concomitant]
     Route: 065
  21. VITAMIN B COMPLEX [Concomitant]
     Route: 065
  22. MOTRIN [Concomitant]
     Route: 065
  23. CALCIUM [Concomitant]
     Route: 065
  24. ASPIRIN [Concomitant]
     Route: 065

REACTIONS (4)
  - Upper gastrointestinal haemorrhage [Unknown]
  - Haemorrhagic anaemia [Unknown]
  - Coagulopathy [Unknown]
  - Epistaxis [Unknown]
